FAERS Safety Report 5469339-5 (Version None)
Quarter: 2007Q3

REPORT INFORMATION
  Report Type: 
  Country: None (occurrence: None)
  Receive Date: 20070927
  Receipt Date: 20070917
  Transmission Date: 20080115
  Serious: Yes (Other)
  Sender: FDA-Public Use
  Company Number: US-JNJFOC-20070500652

PATIENT
  Sex: Female
  Weight: 54.43 kg

DRUGS (3)
  1. ARESTIN [Suspect]
     Route: 048
  2. ARESTIN [Suspect]
     Indication: DRUG USE FOR UNKNOWN INDICATION
     Route: 048
  3. VITAMIN CAP [Concomitant]
     Route: 065

REACTIONS (2)
  - EXOSTOSIS [None]
  - SWELLING [None]
